FAERS Safety Report 9282576 (Version 2)
Quarter: 2013Q2

REPORT INFORMATION
  Report Type: Report from Study
  Country: US (occurrence: US)
  Receive Date: 20130510
  Receipt Date: 20130605
  Transmission Date: 20140414
  Serious: Yes (Hospitalization, Other)
  Sender: FDA-Public Use
  Company Number: PHEH2013US009898

PATIENT
  Sex: Female
  Weight: 67.7 kg

DRUGS (5)
  1. EXJADE [Suspect]
     Indication: SICKLE CELL ANAEMIA
     Dosage: 500 MG, TID
     Route: 048
     Dates: start: 2006, end: 2009
  2. EXJADE [Suspect]
     Dosage: 500 MG, TID
     Route: 048
     Dates: end: 2011
  3. EXJADE [Suspect]
     Dosage: 500 MG, QD
     Route: 048
     Dates: end: 201212
  4. EXJADE [Suspect]
     Dosage: 500 MG, QD
     Route: 048
     Dates: end: 201301
  5. EXJADE [Suspect]
     Dosage: 500 MG, QD
     Route: 048

REACTIONS (5)
  - Pericardial effusion [Unknown]
  - Chest pain [Unknown]
  - Oxygen saturation decreased [Unknown]
  - Haemoglobin decreased [Unknown]
  - Serum ferritin increased [Unknown]
